FAERS Safety Report 5032730-5 (Version None)
Quarter: 2006Q2

REPORT INFORMATION
  Report Type: 
  Country: None (occurrence: None)
  Receive Date: 20060622
  Receipt Date: 20060608
  Transmission Date: 20061013
  Serious: Yes (Other)
  Sender: FDA-Public Use
  Company Number: PHBS2006US08689

PATIENT
  Sex: Male

DRUGS (9)
  1. PREDNISONE (NGX) [Suspect]
     Indication: RENAL TRANSPLANT
  2. ZENAPAX [Concomitant]
  3. MYCOPHENOLATE MOFETIL [Suspect]
     Indication: RENAL TRANSPLANT
  4. GANCICLOVIR [Concomitant]
  5. NYSTATIN [Concomitant]
  6. SULFAMETHOXAZOLE + TRIMETHOPRIM [Concomitant]
  7. CYCLOPHOSPHAMIDE [Concomitant]
     Dosage: 2.5 MG/KG PER DAY
  8. AZATHIOPRINE [Suspect]
  9. CYCLOSPORINE [Suspect]
     Indication: RENAL TRANSPLANT

REACTIONS (13)
  - CONVULSION [None]
  - DISEASE RECURRENCE [None]
  - GASTROENTERITIS VIRAL [None]
  - GASTROINTESTINAL DISORDER [None]
  - HIRSUTISM [None]
  - HYPERTENSION [None]
  - HYPOALBUMINAEMIA [None]
  - HYPONATRAEMIA [None]
  - KIDNEY FIBROSIS [None]
  - NEPHROTIC SYNDROME [None]
  - PROTEINURIA [None]
  - RENAL TUBULAR DISORDER [None]
  - URINE PROTEIN/CREATININE RATIO INCREASED [None]
